FAERS Safety Report 5169318-1 (Version None)
Quarter: 2006Q4

REPORT INFORMATION
  Report Type: 
  Country: None (occurrence: None)
  Receive Date: 20061201
  Receipt Date: 20061120
  Transmission Date: 20070319
  Serious: Yes (Death, Hospitalization)
  Sender: FDA-Public Use
  Company Number: MEDI-0004704

PATIENT
  Age: 1 Month
  Sex: Male
  Weight: 3.38 kg

DRUGS (1)
  1. SYNAGIS [Suspect]
     Indication: ANTIVIRAL PROPHYLAXIS
     Dosage: 50 MG, INTRAMUSCULAR
     Route: 030
     Dates: start: 20051103, end: 20051103

REACTIONS (4)
  - CARDIAC OPERATION [None]
  - HYPOTONIA [None]
  - PALLOR [None]
  - SOMNOLENCE [None]
